FAERS Safety Report 7124486-7 (Version None)
Quarter: 2010Q4

REPORT INFORMATION
  Report Type: 
  Country: None (occurrence: None)
  Receive Date: 20101128
  Receipt Date: 20101125
  Transmission Date: 20110411
  Serious: Yes (Other)
  Sender: FDA-Public Use
  Company Number: FR-AMGEN-KDL416336

PATIENT

DRUGS (2)
  1. VECTIBIX [Suspect]
     Indication: COLORECTAL CANCER
     Dosage: 6 A?G/KG, UNK
     Route: 042
     Dates: start: 20100525
  2. VECTIBIX [Suspect]
     Dosage: 30 A?G/KG, UNK

REACTIONS (5)
  - DERMATITIS ACNEIFORM [None]
  - ERYTHROSIS [None]
  - MALIGNANT NEOPLASM PROGRESSION [None]
  - SKIN REACTION [None]
  - XEROSIS [None]
